FAERS Safety Report 20778010 (Version 2)
Quarter: 2022Q2

REPORT INFORMATION
  Report Type: Spontaneous
  Country: US (occurrence: US)
  Receive Date: 20220503
  Receipt Date: 20220517
  Transmission Date: 20220720
  Serious: No
  Sender: FDA-Public Use
  Company Number: US-PFIZER INC-202200612729

PATIENT
  Age: 24 Year
  Sex: Female

DRUGS (2)
  1. DEPO-PROVERA [Suspect]
     Active Substance: MEDROXYPROGESTERONE ACETATE
     Dosage: QUANTITY IS 0.65ML, ONCE PER EVERY 90 DAYS. SHE USES IT ONCE EVERY 3 MONTHS
  2. DEPO-PROVERA [Suspect]
     Active Substance: MEDROXYPROGESTERONE ACETATE
     Dosage: UNK, EVERY 3 MONTHS(ONLY USES IT ONE TIME, ONCE PER EVERY 90 DAYS. SHE USES IT ONCE EVERY 3 MONTHS)

REACTIONS (4)
  - Drug dose omission by device [Unknown]
  - Needle issue [Unknown]
  - Device breakage [Unknown]
  - Product administration error [Unknown]
